FAERS Safety Report 6580553-8 (Version None)
Quarter: 2010Q1

REPORT INFORMATION
  Report Type: 
  Country: None (occurrence: None)
  Receive Date: 20100212
  Receipt Date: 20100208
  Transmission Date: 20100710
  Serious: Yes (Life-Threatening, Hospitalization, Other)
  Sender: FDA-Public Use
  Company Number: US-PFIZER INC-2010017723

PATIENT
  Sex: Male
  Weight: 92.986 kg

DRUGS (3)
  1. CELEBREX [Suspect]
     Indication: BACK INJURY
     Dosage: FREQUENCY: 3X/DAY,
     Dates: end: 20050701
  2. VIOXX [Suspect]
     Dates: start: 20050101, end: 20050101
  3. OXYCONTIN [Concomitant]

REACTIONS (3)
  - BACK INJURY [None]
  - CARDIAC FAILURE CONGESTIVE [None]
  - MYOCARDIAL INFARCTION [None]
